FAERS Safety Report 8246591-4 (Version None)
Quarter: 2012Q1

REPORT INFORMATION
  Report Type: 
  Country: None (occurrence: None)
  Receive Date: 20120330
  Receipt Date: 20120328
  Transmission Date: 20120608
  Serious: Yes (Other)
  Sender: FDA-Public Use
  Company Number: US-PFIZER INC-2012080022

PATIENT
  Sex: Female
  Weight: 77.098 kg

DRUGS (5)
  1. FIORICET [Concomitant]
     Dosage: UNK
  2. TRAMADOL [Concomitant]
     Dosage: 50 MG, UNK
  3. CELEXA [Concomitant]
     Dosage: 20 MG, UNK
  4. LYRICA [Suspect]
     Indication: FIBROMYALGIA
     Dosage: 150 MG, 2X/DAY
     Route: 048
     Dates: start: 20060101
  5. ANAPROX DS [Concomitant]
     Dosage: 550 MG, UNK

REACTIONS (1)
  - HYPOTHYROIDISM [None]
